FAERS Safety Report 4479178-X (Version None)
Quarter: 2004Q4

REPORT INFORMATION
  Report Type: 
  Country: None (occurrence: None)
  Receive Date: 20041019
  Receipt Date: 20041019
  Transmission Date: 20050328
  Serious: Yes (Other)
  Sender: FDA-Public Use
  Company Number: None

PATIENT
  Age: 49 Year
  Sex: Female
  Weight: 81.6475 kg

DRUGS (1)
  1. CARAC [Suspect]
     Indication: HYPERKERATOSIS
     Dosage: QHS
     Dates: start: 20040812

REACTIONS (3)
  - HEADACHE [None]
  - NAUSEA [None]
  - SLEEP DISORDER [None]
